FAERS Safety Report 8167180-6 (Version None)
Quarter: 2012Q1

REPORT INFORMATION
  Report Type: 
  Country: None (occurrence: None)
  Receive Date: 20120227
  Receipt Date: 20120213
  Transmission Date: 20120608
  Serious: Yes (Other)
  Sender: FDA-Public Use
  Company Number: US-ELI_LILLY_AND_COMPANY-US201201003080

PATIENT
  Sex: Female
  Weight: 51.3 kg

DRUGS (5)
  1. CYMBALTA [Suspect]
     Indication: HEADACHE
     Dosage: 30 MG, QD
     Route: 048
     Dates: start: 20111108, end: 20111101
  2. CYMBALTA [Suspect]
     Dosage: 30 MG, QD
     Route: 048
     Dates: start: 20111225, end: 20111227
  3. CYMBALTA [Suspect]
     Dosage: 60 MG, QD
     Route: 048
     Dates: start: 20111101, end: 20111224
  4. ANTIBIOTICS [Concomitant]
  5. MELATONIN [Concomitant]

REACTIONS (12)
  - HEADACHE [None]
  - INTENTIONAL DRUG MISUSE [None]
  - PARAESTHESIA [None]
  - SENSORY LOSS [None]
  - INTENTIONAL SELF-INJURY [None]
  - URTICARIA [None]
  - SUICIDAL IDEATION [None]
  - TREMOR [None]
  - PALPITATIONS [None]
  - IRRITABILITY [None]
  - OFF LABEL USE [None]
  - SLEEP DISORDER [None]
